FAERS Safety Report 16041309 (Version 1)
Quarter: 2019Q2

REPORT INFORMATION
  Report Type: Spontaneous
  Country: US (occurrence: US)
  Receive Date: 20190305
  Receipt Date: 20190305
  Transmission Date: 20190711
  Serious: Yes (Hospitalization, Other)
  Sender: FDA-Public Use
  Company Number: None

PATIENT
  Age: 58 Year
  Sex: Female
  Weight: 69.3 kg

DRUGS (6)
  1. LORAZEPAM 0.5 MG AT BEDTIME [Concomitant]
  2. TRINTELLIX [Suspect]
     Active Substance: VORTIOXETINE HYDROBROMIDE
     Indication: MAJOR DEPRESSION
     Dosage: ?          QUANTITY:1 TABLET(S);?
     Route: 048
     Dates: start: 20180610, end: 20181113
  3. DICLOFENAC SODIUM 1% GEL PRN [Concomitant]
  4. ESCILALOPRAM TABLET 20 MG DAILY [Concomitant]
  5. CPAP MACHINE [Concomitant]
  6. LANSOPRAZOLE SOLUTAB 30 MG BID [Concomitant]

REACTIONS (2)
  - Emotional disorder [None]
  - Suicide attempt [None]

NARRATIVE: CASE EVENT DATE: 20181113
